FAERS Safety Report 22337687 (Version 1)
Quarter: 2023Q2

REPORT INFORMATION
  Report Type: Spontaneous
  Country: GB (occurrence: GB)
  Receive Date: 20230518
  Receipt Date: 20230518
  Transmission Date: 20230722
  Serious: Yes (Life-Threatening, Hospitalization, Disabling, Other)
  Sender: FDA-Public Use
  Company Number: None

PATIENT
  Age: 65 Year
  Sex: Female

DRUGS (41)
  1. ESOMEPRAZOLE [Suspect]
     Active Substance: ESOMEPRAZOLE
     Indication: Reflux laryngitis
     Dosage: 40 MILLIGRAM
  2. ISOSORBIDE MONONITRATE [Suspect]
     Active Substance: ISOSORBIDE MONONITRATE
     Indication: Product used for unknown indication
     Dosage: 50 MILLIGRAM, DAILY
  3. SIMVASTATIN [Suspect]
     Active Substance: SIMVASTATIN
     Indication: Product used for unknown indication
     Dosage: UNK, 1 DOSE PER 1 D
     Dates: start: 20221123
  4. LEVOTHYROXINE [Suspect]
     Active Substance: LEVOTHYROXINE
     Indication: Ill-defined disorder
     Dosage: 12 MICROGRAM, 1 DOSE PER 1 D
  5. BISOPROLOL [Suspect]
     Active Substance: BISOPROLOL
     Indication: Cerebrovascular accident prophylaxis
     Dosage: 1 DOSE PER 1 D
     Dates: start: 20230301
  6. LANSOPRAZOLE [Suspect]
     Active Substance: LANSOPRAZOLE
     Indication: Atrial fibrillation
     Dosage: UNK, 1 DOSE PER 1 D
     Dates: start: 20210628
  7. CETIRIZINE [Suspect]
     Active Substance: CETIRIZINE HYDROCHLORIDE
     Indication: Product used for unknown indication
     Dosage: 10 MILLIGRAM, 1 DOSE PER 1 D
  8. DIGOXIN [Suspect]
     Active Substance: DIGOXIN
     Indication: Cerebrovascular accident prophylaxis
     Dosage: 62.5 MICROGRAM, 1 DOSE PER 1 D
  9. FELODIPINE [Suspect]
     Active Substance: FELODIPINE
     Indication: Blood pressure measurement
  10. CANDESARTAN [Suspect]
     Active Substance: CANDESARTAN
     Indication: Product used for unknown indication
     Dosage: 1 DOSE PER 1 D
     Dates: start: 20220222
  11. NAPROXEN [Suspect]
     Active Substance: NAPROXEN
     Indication: Product used for unknown indication
  12. LINAGLIPTIN [Suspect]
     Active Substance: LINAGLIPTIN
     Indication: Product used for unknown indication
     Dosage: 5 MILLIGRAM, 1 DOSE PER 1 D
  13. APIXABAN [Suspect]
     Active Substance: APIXABAN
     Indication: Cerebrovascular accident prophylaxis
     Dosage: 10 MILLIGRAM, 1 DOSE PER 1 D
     Dates: start: 20180207, end: 20180207
  14. IMDUR [Suspect]
     Active Substance: ISOSORBIDE MONONITRATE
     Indication: Product used for unknown indication
     Dosage: 50 MILLIGRAM, 1 DOSE PER 1 D
  15. DAPAGLIFLOZIN [Suspect]
     Active Substance: DAPAGLIFLOZIN
     Indication: Ill-defined disorder
     Dosage: UNK
     Dates: start: 20220725
  16. HYDROCHLOROTHIAZIDE [Suspect]
     Active Substance: HYDROCHLOROTHIAZIDE
     Indication: Product used for unknown indication
     Dosage: 2 MILLIGRAM
  17. ASTRAZENECA COVID-19 VACCINE [Suspect]
     Active Substance: AZD-1222
     Indication: COVID-19 immunisation
     Dates: start: 20211021
  18. ISOSORBIDE DINITRATE [Suspect]
     Active Substance: ISOSORBIDE DINITRATE
     Indication: Product used for unknown indication
     Dosage: 50 MILLIGRAM, ONCE A DAY
  19. LOSARTAN [Concomitant]
     Active Substance: LOSARTAN
     Indication: Ill-defined disorder
     Dosage: UNK UNK, QD
     Dates: start: 20210628
  20. AMITRIPTYLINE HYDROCHLORIDE [Concomitant]
     Active Substance: AMITRIPTYLINE HYDROCHLORIDE
     Dosage: UNK UNK, 1 DOSE PER 1 D
     Dates: start: 20221123
  21. BENDROFLUMETHIAZIDE [Concomitant]
     Active Substance: BENDROFLUMETHIAZIDE
     Dosage: UNK, 1 DOSE PER 1 D
     Dates: start: 20221123
  22. FOSFOMYCIN [Concomitant]
     Active Substance: FOSFOMYCIN
     Dosage: UNK; ;
     Dates: start: 20230227, end: 20230228
  23. ESTRIOL [Concomitant]
     Active Substance: ESTRIOL
     Dosage: UNK UNK, 1 DOSE PER 1 D
     Dates: start: 20221123
  24. OMEPRAZOLE [Concomitant]
     Active Substance: OMEPRAZOLE
     Dosage: UNK UNK, BID
     Dates: start: 20221123
  25. BISOPROLOL [Suspect]
     Active Substance: BISOPROLOL
     Indication: Cerebrovascular accident prophylaxis
     Dosage: 10 MILLIGRAM, 1 DOSE PER 1 D
     Dates: start: 20230301
  26. ASTRAZENECA COVID-19 VACCINE [Suspect]
     Active Substance: AZD-1222
     Indication: COVID-19 immunisation
     Dates: start: 20210208, end: 20210208
  27. ASTRAZENECA COVID-19 VACCINE [Suspect]
     Active Substance: AZD-1222
     Indication: COVID-19 immunisation
     Dates: start: 20210312
  28. ASTRAZENECA COVID-19 VACCINE [Suspect]
     Active Substance: AZD-1222
     Indication: COVID-19 immunisation
     Dates: start: 20210307
  29. ASTRAZENECA COVID-19 VACCINE [Suspect]
     Active Substance: AZD-1222
     Indication: COVID-19 immunisation
     Dates: start: 20210312, end: 20210312
  30. ASTRAZENECA COVID-19 VACCINE [Suspect]
     Active Substance: AZD-1222
     Indication: COVID-19 immunisation
     Dates: start: 20221214
  31. ASTRAZENECA COVID-19 VACCINE [Suspect]
     Active Substance: AZD-1222
     Indication: COVID-19 immunisation
     Dates: start: 20210312, end: 20210312
  32. ASTRAZENECA COVID-19 VACCINE [Suspect]
     Active Substance: AZD-1222
     Indication: COVID-19 immunisation
     Dates: start: 20210622, end: 20210622
  33. ASTRAZENECA COVID-19 VACCINE [Suspect]
     Active Substance: AZD-1222
     Indication: COVID-19 immunisation
     Dates: start: 20210622, end: 20210622
  34. ASTRAZENECA COVID-19 VACCINE [Suspect]
     Active Substance: AZD-1222
     Indication: COVID-19 immunisation
     Dates: start: 20210208, end: 20210208
  35. ASTRAZENECA COVID-19 VACCINE [Suspect]
     Active Substance: AZD-1222
     Indication: COVID-19 immunisation
     Dates: start: 20210507
  36. ASTRAZENECA COVID-19 VACCINE [Suspect]
     Active Substance: AZD-1222
     Indication: COVID-19 immunisation
     Dates: start: 20210312
  37. ASTRAZENECA COVID-19 VACCINE [Suspect]
     Active Substance: AZD-1222
     Indication: COVID-19 immunisation
     Dates: start: 20210605
  38. ASTRAZENECA COVID-19 VACCINE [Suspect]
     Active Substance: AZD-1222
     Indication: COVID-19 immunisation
     Dates: start: 20211221, end: 20211221
  39. LANSOPRAZOLE [Suspect]
     Active Substance: LANSOPRAZOLE
     Indication: Atrial fibrillation
     Dosage: 30 MILLIGRAM, 1 DOSE PER 1 D
     Route: 050
  40. DIGOXIN [Suspect]
     Active Substance: DIGOXIN
     Indication: Cerebrovascular accident prophylaxis
     Dosage: 63 MICROGRAM, QD
  41. ISOSORBIDE MONONITRATE [Suspect]
     Active Substance: ISOSORBIDE MONONITRATE
     Indication: Product used for unknown indication
     Dosage: 50 MILLIGRAM, DAILY

REACTIONS (65)
  - Back pain [Unknown]
  - Tinnitus [Not Recovered/Not Resolved]
  - Hyperhidrosis [Unknown]
  - Angioedema [Recovered/Resolved]
  - Pruritus [Recovering/Resolving]
  - Tachycardia [Unknown]
  - Muscular weakness [Unknown]
  - Anxiety [Not Recovered/Not Resolved]
  - Visual impairment [Not Recovered/Not Resolved]
  - Malaise [Unknown]
  - Pericarditis [Not Recovered/Not Resolved]
  - Amnesia [Not Recovered/Not Resolved]
  - Myocardial infarction [Recovered/Resolved with Sequelae]
  - Intentional product use issue [Unknown]
  - Alopecia [Recovered/Resolved with Sequelae]
  - Abdominal pain upper [Unknown]
  - Blood glucose increased [Unknown]
  - Pain [Recovered/Resolved]
  - Pyrexia [Recovered/Resolved]
  - Memory impairment [Recovering/Resolving]
  - Anosmia [Recovered/Resolved]
  - Heart rate increased [Unknown]
  - COVID-19 [Recovered/Resolved with Sequelae]
  - Dehydration [Unknown]
  - Diplopia [Not Recovered/Not Resolved]
  - Lip swelling [Recovering/Resolving]
  - Dry skin [Not Recovered/Not Resolved]
  - Vomiting [Recovered/Resolved]
  - Cardiospasm [Not Recovered/Not Resolved]
  - Ventricular tachycardia [Not Recovered/Not Resolved]
  - Subarachnoid haemorrhage [Recovered/Resolved with Sequelae]
  - Dyspnoea [Unknown]
  - Eye pruritus [Recovered/Resolved]
  - Transient ischaemic attack [Recovered/Resolved]
  - Hallucination [Recovered/Resolved]
  - Feeling abnormal [Unknown]
  - Dizziness [Recovered/Resolved]
  - Immunisation [Recovered/Resolved]
  - Palmoplantar keratoderma [Not Recovered/Not Resolved]
  - Blindness [Not Recovered/Not Resolved]
  - Facial pain [Recovered/Resolved]
  - Pruritus genital [Recovered/Resolved]
  - Off label use [Unknown]
  - Cognitive disorder [Recovered/Resolved]
  - Vasculitis [Not Recovered/Not Resolved]
  - Headache [Not Recovered/Not Resolved]
  - Tension headache [Not Recovered/Not Resolved]
  - Carotid artery occlusion [Recovered/Resolved with Sequelae]
  - Intentional product misuse [Unknown]
  - Fatigue [Unknown]
  - Muscle twitching [Unknown]
  - Chest pain [Unknown]
  - Sleep terror [Recovered/Resolved]
  - Diarrhoea [Recovered/Resolved]
  - Arthralgia [Recovered/Resolved]
  - Abdominal discomfort [Unknown]
  - Pain of skin [Recovered/Resolved]
  - Disturbance in attention [Recovered/Resolved]
  - Peripheral swelling [Recovered/Resolved]
  - Atrial tachycardia [Not Recovered/Not Resolved]
  - Nausea [Recovered/Resolved]
  - Rash papular [Recovering/Resolving]
  - Insomnia [Unknown]
  - Palpitations [Unknown]
  - Migraine [Not Recovered/Not Resolved]

NARRATIVE: CASE EVENT DATE: 20180207
